FAERS Safety Report 25552627 (Version 3)
Quarter: 2025Q3

REPORT INFORMATION
  Report Type: Spontaneous
  Country: US (occurrence: US)
  Receive Date: 20250715
  Receipt Date: 20250918
  Transmission Date: 20251021
  Serious: No
  Sender: LUPIN
  Company Number: US-LUPIN PHARMACEUTICALS INC.-2025-06065

PATIENT

DRUGS (6)
  1. TOLVAPTAN [Suspect]
     Active Substance: TOLVAPTAN
     Indication: Congenital cystic kidney disease
     Dosage: 45 MILLIGRAM QD (ON WAKING UP)
  2. TOLVAPTAN [Suspect]
     Active Substance: TOLVAPTAN
     Indication: Congenital cystic kidney disease
     Dosage: 15 MILLIGRAM, QD (8 HOURS LATER)
  3. METFORMIN [Suspect]
     Active Substance: METFORMIN HYDROCHLORIDE
     Indication: Product used for unknown indication
     Route: 065
  4. GABAPENTIN [Concomitant]
     Active Substance: GABAPENTIN
     Indication: Product used for unknown indication
     Route: 065
  5. JARDIANCE [Concomitant]
     Active Substance: EMPAGLIFLOZIN
     Indication: Product used for unknown indication
     Route: 065
  6. JYNARQUE [Concomitant]
     Active Substance: TOLVAPTAN
     Indication: Product used for unknown indication
     Route: 065

REACTIONS (9)
  - Dizziness [Unknown]
  - Fatigue [Unknown]
  - Memory impairment [Unknown]
  - Nausea [Unknown]
  - Vomiting [Unknown]
  - Biliary colic [Not Recovered/Not Resolved]
  - Pollakiuria [Not Recovered/Not Resolved]
  - Thirst [Not Recovered/Not Resolved]
  - Product dose omission issue [Unknown]
